FAERS Safety Report 8402994-6 (Version None)
Quarter: 2012Q2

REPORT INFORMATION
  Report Type: 
  Country: None (occurrence: None)
  Receive Date: 20120601
  Receipt Date: 20120529
  Transmission Date: 20120825
  Serious: Yes (Death, Congenital Anomaly)
  Sender: FDA-Public Use
  Company Number: FR-ABBOTT-12P-056-0940931-00

PATIENT

DRUGS (1)
  1. DEPAKENE [Suspect]
     Indication: MATERNAL EXPOSURE TIMING UNSPECIFIED
     Route: 064

REACTIONS (9)
  - FOETAL MALFORMATION [None]
  - FOETAL ANTICONVULSANT SYNDROME [None]
  - EXOMPHALOS [None]
  - LIMB MALFORMATION [None]
  - CONGENITAL HAND MALFORMATION [None]
  - TALIPES [None]
  - FOETAL EXPOSURE DURING PREGNANCY [None]
  - ABORTION INDUCED [None]
  - NECK DEFORMITY [None]
